FAERS Safety Report 7594574-X (Version None)
Quarter: 2011Q3

REPORT INFORMATION
  Report Type: 
  Country: None (occurrence: None)
  Receive Date: 20110707
  Receipt Date: 20110628
  Transmission Date: 20111222
  Serious: Yes (Other)
  Sender: FDA-Public Use
  Company Number: JP-B.I. PHARMACEUTICALS,INC./RIDGEFIELD-2011-BP-05819NB

PATIENT
  Sex: Male

DRUGS (9)
  1. FUROSEMIDE [Concomitant]
     Indication: CARDIAC FAILURE CONGESTIVE
     Dosage: 10 MG
     Route: 048
     Dates: start: 20070518
  2. GASMOTIN [Concomitant]
     Indication: GASTRITIS
     Dosage: 15 MG
     Route: 048
     Dates: start: 20100108
  3. WARFARIN SODIUM [Concomitant]
     Indication: ATRIAL FIBRILLATION
     Dosage: 2.5 MG
     Route: 048
     Dates: start: 20061013
  4. STREPTOMYCIN [Concomitant]
     Indication: GASTRITIS
     Dosage: 3.9 G
     Route: 048
     Dates: start: 20090723
  5. ATELEC [Concomitant]
     Indication: HYPERTENSION
     Dosage: 2.5 MG
     Route: 048
     Dates: start: 20100625, end: 20101029
  6. MICARDIS [Suspect]
     Indication: HYPERTENSION
     Dosage: 40 MG
     Route: 048
     Dates: start: 20100728, end: 20101029
  7. TELMISARTAN AND HYDROCHLOROTHIAZIDE [Suspect]
     Indication: CARDIAC FAILURE CONGESTIVE
     Route: 048
     Dates: start: 20100917, end: 20101029
  8. ALLOPURINOL [Concomitant]
     Indication: HYPERURICAEMIA
     Dosage: 100 MG
     Route: 048
     Dates: start: 20060210
  9. MARZULENE [Concomitant]
     Indication: GASTRITIS
     Dosage: 2 G
     Route: 048
     Dates: start: 20070518

REACTIONS (1)
  - BRAIN NATRIURETIC PEPTIDE INCREASED [None]
